FAERS Safety Report 8425246-7 (Version None)
Quarter: 2012Q2

REPORT INFORMATION
  Report Type: 
  Country: None (occurrence: None)
  Receive Date: 20120605
  Receipt Date: 20120528
  Transmission Date: 20120825
  Serious: Yes (Other)
  Sender: FDA-Public Use
  Company Number: GER/UKI/12/0024482

PATIENT
  Age: 20 Year
  Sex: Male

DRUGS (2)
  1. RISPERIDONE [Suspect]
     Indication: PSYCHOTIC DISORDER
     Dosage: 1 MG, ORAL
     Route: 048
  2. ABILIFY [Concomitant]

REACTIONS (1)
  - THERAPEUTIC PRODUCT INEFFECTIVE [None]
